FAERS Safety Report 5394409-X (Version None)
Quarter: 2007Q3

REPORT INFORMATION
  Report Type: 
  Country: None (occurrence: None)
  Receive Date: 20070723
  Receipt Date: 20070710
  Transmission Date: 20080115
  Serious: Yes (Death)
  Sender: FDA-Public Use
  Company Number: GB-PURDUE-GBR_2007_0003112

PATIENT
  Age: 28 Year
  Sex: Female

DRUGS (11)
  1. OXYCONTIN [Suspect]
     Indication: PAIN
     Dosage: 160 MG, BID
     Route: 065
  2. OXYCONTIN [Suspect]
     Dosage: 80 MG, BID
     Route: 065
  3. OXYCONTIN [Suspect]
     Dosage: 40 MG, BID
     Route: 065
  4. OXYNORM [Suspect]
     Indication: PAIN
     Dosage: 30 MG, QID PRN
     Route: 065
  5. OXYNORM [Suspect]
     Dosage: 15 MG, PRN
  6. OXYNORM [Suspect]
     Dosage: 50 MG, QID PRN
  7. PREGABALIN [Concomitant]
     Indication: PAIN
     Dosage: 300 MG, BID
     Route: 065
  8. PREGABALIN [Concomitant]
     Dosage: 150 MG, BID
     Route: 065
  9. PREGABALIN [Concomitant]
     Dosage: 75 MG, BID
  10. ACETAMINOPHEN [Concomitant]
     Indication: PAIN
     Dosage: 1 GRAM, QID
     Route: 065
  11. MOVICOL [Concomitant]
     Indication: DRUG USE FOR UNKNOWN INDICATION
     Route: 065

REACTIONS (1)
  - SUDDEN DEATH [None]
